FAERS Safety Report 8926319 (Version 1)
Quarter: 2012Q4

REPORT INFORMATION
  Report Type: 
  Country: US (occurrence: US)
  Receive Date: 20121127
  Receipt Date: 20121127
  Transmission Date: 20130627
  Serious: Yes (Life-Threatening, Hospitalization, Other)
  Sender: FDA-Public Use
  Company Number: US-GLAXOSMITHKLINE-A0869247A

PATIENT
  Age: 2 Year
  Sex: Male

DRUGS (4)
  1. LAMICTAL [Suspect]
     Indication: EPILEPSY
     Dosage: 5MG See dosage text
     Route: 048
     Dates: start: 20100616, end: 20100713
  2. DEPAKOTE [Concomitant]
  3. VITAMINS + MINERALS [Concomitant]
  4. KLONOPIN [Concomitant]

REACTIONS (9)
  - Convulsion [Unknown]
  - Grand mal convulsion [Recovering/Resolving]
  - Loss of consciousness [Recovering/Resolving]
  - Seizure cluster [Recovering/Resolving]
  - Atonic seizures [Recovering/Resolving]
  - Disorientation [Recovering/Resolving]
  - Somnolence [Recovering/Resolving]
  - Urinary incontinence [Recovering/Resolving]
  - Faecal incontinence [Recovering/Resolving]
